FAERS Safety Report 5898001-X (Version None)
Quarter: 2008Q3

REPORT INFORMATION
  Report Type: 
  Country: None (occurrence: None)
  Receive Date: 20080917
  Receipt Date: 20071202
  Transmission Date: 20090109
  Serious: Yes (Other)
  Sender: FDA-Public Use
  Company Number: PHEH2007US15513

PATIENT
  Sex: Female

DRUGS (2)
  1. FEMARA [Suspect]
     Indication: BREAST CANCER
     Dates: start: 20071101
  2. CLASTEON (CLODRONATE DISODIUM) [Concomitant]

REACTIONS (2)
  - BONE DISORDER [None]
  - MALIGNANT NEOPLASM PROGRESSION [None]
